FAERS Safety Report 5605260-7 (Version None)
Quarter: 2008Q1

REPORT INFORMATION
  Report Type: 
  Country: None (occurrence: None)
  Receive Date: 20080129
  Receipt Date: 20080121
  Transmission Date: 20080703
  Serious: Yes (Hospitalization)
  Sender: FDA-Public Use
  Company Number: SE-PFIZER INC-2006017701

PATIENT
  Sex: Male

DRUGS (11)
  1. CABERGOLINE [Suspect]
     Indication: PARKINSON'S DISEASE
     Dosage: DAILY DOSE:8MG
     Route: 048
     Dates: start: 19990101, end: 20050201
  2. ARICEPT [Concomitant]
     Route: 065
  3. EMCONCOR [Concomitant]
     Route: 048
  4. MADOPARK [Concomitant]
     Route: 048
  5. MADOPARK - SLOW RELEASE [Concomitant]
     Route: 048
  6. MADOPARK QUICK [Concomitant]
     Route: 048
  7. EXELON [Concomitant]
     Route: 048
  8. EDRONAX [Concomitant]
     Route: 048
  9. CIPRAMIL [Concomitant]
     Route: 065
  10. LITAREX [Concomitant]
     Route: 065
  11. MIANSERIN [Concomitant]
     Route: 065

REACTIONS (7)
  - CONFUSIONAL STATE [None]
  - DILATATION ATRIAL [None]
  - HALLUCINATION [None]
  - HEART VALVE INCOMPETENCE [None]
  - ORTHOSTATIC HYPOTENSION [None]
  - PULMONARY HYPERTENSION [None]
  - SYNCOPE [None]
